FAERS Safety Report 13552820 (Version 1)
Quarter: 2017Q2

REPORT INFORMATION
  Report Type: Other
  Country: CA (occurrence: CA)
  Receive Date: 20170517
  Receipt Date: 20170517
  Transmission Date: 20170830
  Serious: Yes (Hospitalization, Other)
  Sender: FDA-Public Use
  Company Number: CA-APOTEX-2017AP011803

PATIENT
  Age: 73 Year
  Sex: Female
  Weight: 50 kg

DRUGS (10)
  1. DESOXIMETASONE. [Suspect]
     Active Substance: DESOXIMETASONE
     Indication: PRODUCT USED FOR UNKNOWN INDICATION
     Route: 065
  2. DABIGATRAN ETEXILATE MESILATE [Suspect]
     Active Substance: DABIGATRAN ETEXILATE MESYLATE
     Indication: ARRHYTHMIA
  3. APO-DILTIAZ [Suspect]
     Active Substance: DILTIAZEM HYDROCHLORIDE
     Indication: PRODUCT USED FOR UNKNOWN INDICATION
     Dosage: 120 MG, QD
     Route: 065
  4. SANDOSTATIN [Suspect]
     Active Substance: OCTREOTIDE ACETATE
     Indication: NEUROENDOCRINE TUMOUR
     Dosage: 40 MG, Q.M.T.
     Route: 058
  5. SANDOSTATIN [Suspect]
     Active Substance: OCTREOTIDE ACETATE
     Dosage: 30 MG, Q.M.T.
     Route: 030
  6. SANDOSTATIN [Suspect]
     Active Substance: OCTREOTIDE ACETATE
     Dosage: 10 MG, Q.M.T.
     Route: 030
  7. DABIGATRAN ETEXILATE MESILATE [Suspect]
     Active Substance: DABIGATRAN ETEXILATE MESYLATE
     Indication: ATRIAL FIBRILLATION
     Dosage: 150 MG, BID
     Route: 065
  8. SANDOSTATIN [Suspect]
     Active Substance: OCTREOTIDE ACETATE
     Dosage: 40 MG, Q.M.T.
     Route: 030
  9. SANDOSTATIN [Suspect]
     Active Substance: OCTREOTIDE ACETATE
     Dosage: 20 MG, UNK
     Route: 030
  10. APO-DILTIAZ [Suspect]
     Active Substance: DILTIAZEM HYDROCHLORIDE
     Dosage: 180 MG, QD
     Route: 065

REACTIONS (35)
  - Fatigue [Recovering/Resolving]
  - Urticaria [Recovering/Resolving]
  - Atrial fibrillation [Recovering/Resolving]
  - Arrhythmia [Recovering/Resolving]
  - Diarrhoea [Recovering/Resolving]
  - Erythema [Recovering/Resolving]
  - Dizziness [Recovering/Resolving]
  - Back pain [Recovering/Resolving]
  - Injection site pain [Recovering/Resolving]
  - Metastases to liver [Recovering/Resolving]
  - Skin disorder [Recovering/Resolving]
  - Weight decreased [Recovering/Resolving]
  - Loss of consciousness [Recovering/Resolving]
  - Hypersensitivity [Recovering/Resolving]
  - Injection site haemorrhage [Recovering/Resolving]
  - Intestinal obstruction [Recovering/Resolving]
  - Cough [Recovering/Resolving]
  - Injection site oedema [Recovering/Resolving]
  - Piloerection [Recovering/Resolving]
  - Inappropriate schedule of drug administration [Recovering/Resolving]
  - Injection site haematoma [Recovering/Resolving]
  - Malignant neoplasm progression [Recovering/Resolving]
  - Pulmonary embolism [Recovering/Resolving]
  - Heart rate decreased [Recovering/Resolving]
  - Constipation [Recovering/Resolving]
  - Anaemia [Recovering/Resolving]
  - Blood pressure increased [Recovering/Resolving]
  - Hepatic pain [Recovering/Resolving]
  - Dyspnoea [Recovering/Resolving]
  - Nausea [Recovering/Resolving]
  - Abdominal adhesions [Recovering/Resolving]
  - Blood pressure systolic increased [Recovering/Resolving]
  - Body temperature decreased [Recovering/Resolving]
  - Feeling abnormal [Recovering/Resolving]
  - Incorrect dose administered [Recovering/Resolving]
